FAERS Safety Report 7450179-2 (Version None)
Quarter: 2011Q2

REPORT INFORMATION
  Report Type: 
  Country: None (occurrence: None)
  Receive Date: 20110502
  Receipt Date: 20110426
  Transmission Date: 20111010
  Serious: No
  Sender: FDA-Public Use
  Company Number: US-PFIZER INC-2011091131

PATIENT
  Age: 36 Year
  Sex: Female

DRUGS (4)
  1. LITHIUM CARBONATE [Suspect]
     Dosage: UNK
  2. GEODON [Suspect]
     Indication: BIPOLAR DISORDER
     Dosage: 40MG IN THE MORNING AND 160MG IN THE EVENING
     Route: 048
  3. LAMICTAL [Concomitant]
     Dosage: 50 MG, UNK
  4. AMBIEN [Concomitant]
     Dosage: 10 MG, UNK

REACTIONS (3)
  - TREMOR [None]
  - EYE MOVEMENT DISORDER [None]
  - FEELING ABNORMAL [None]
